FAERS Safety Report 9146673 (Version 1)
Quarter: 2013Q1

REPORT INFORMATION
  Report Type: Spontaneous
  Country: US (occurrence: None)
  Receive Date: 20130228
  Receipt Date: 20130228
  Transmission Date: 20140127
  Serious: Yes (Other)
  Sender: FDA-Public Use
  Company Number: None

PATIENT
  Age: 43 Year
  Sex: Female
  Weight: 57.15 kg

DRUGS (1)
  1. GENERESS FE [Suspect]
     Indication: HORMONE THERAPY
     Dosage: 1 TABLET 1ST DAY  QD PO
     Route: 048
     Dates: end: 20130212

REACTIONS (2)
  - Angioedema [None]
  - Muscle spasms [None]
